FAERS Safety Report 21880727 (Version 1)
Quarter: 2023Q1

REPORT INFORMATION
  Report Type: Report from Study
  Country: US (occurrence: None)
  Receive Date: 20230118
  Receipt Date: 20230118
  Transmission Date: 20230418
  Serious: Yes (Hospitalization)
  Sender: FDA-Public Use
  Company Number: US-Eisai Inc (Eisai China)-EC-2023-131953

PATIENT
  Age: 60 Year
  Sex: Male

DRUGS (7)
  1. LENVIMA [Suspect]
     Active Substance: LENVATINIB
     Indication: Renal cancer
     Route: 048
     Dates: start: 20221007, end: 20221227
  2. ROSUVASTATIN [Concomitant]
     Active Substance: ROSUVASTATIN
  3. AMLODIPINE [Concomitant]
     Active Substance: AMLODIPINE BESYLATE
  4. CYANOCOBALAMIN [Concomitant]
     Active Substance: CYANOCOBALAMIN
  5. TEMAZEPAM [Concomitant]
     Active Substance: TEMAZEPAM
  6. TRAZODONE HC [Concomitant]
  7. TRIAMTERENE [Concomitant]
     Active Substance: TRIAMTERENE
     Dosage: 37.5-25M

REACTIONS (4)
  - Abdominal pain upper [Unknown]
  - Weight decreased [Unknown]
  - Aphonia [Unknown]
  - Myalgia [Unknown]

NARRATIVE: CASE EVENT DATE: 20221201
